FAERS Safety Report 6160060-7 (Version None)
Quarter: 2009Q2

REPORT INFORMATION
  Report Type: 
  Country: None (occurrence: None)
  Receive Date: 20090420
  Receipt Date: 20090416
  Transmission Date: 20091009
  Serious: Yes (Death, Life-Threatening, Hospitalization)
  Sender: FDA-Public Use
  Company Number: US-ASTRAZENECA-2007UW08814

PATIENT
  Age: 90 Year
  Sex: Female
  Weight: 51.7 kg

DRUGS (16)
  1. SEROQUEL [Suspect]
     Indication: DEMENTIA
     Route: 048
     Dates: start: 20041201
  2. LASIX [Concomitant]
  3. REMERON [Concomitant]
  4. SENNA [Concomitant]
  5. INSULATARD NPH HUMAN [Concomitant]
  6. NEURONTIN [Concomitant]
     Dosage: PO
  7. ASPIRIN [Concomitant]
     Dosage: PO
  8. LISINOPRIL [Concomitant]
     Dosage: PO
  9. DIGOXIN [Concomitant]
     Dosage: PO
  10. TRUSOPT [Concomitant]
     Dosage: 2% DROPS BID
  11. MULTI-VITAMIN [Concomitant]
     Dosage: I TABLET PO DAILY
  12. ACETAMINOPHEN [Concomitant]
     Dosage: PO BID
  13. CRANBERRY [Concomitant]
     Dosage: 2 TABLETS BID
  14. NITROFURANTOIN [Concomitant]
     Dosage: PO
  15. METFORMIN HCL [Concomitant]
  16. PEPCID [Concomitant]

REACTIONS (19)
  - ACUTE RESPIRATORY FAILURE [None]
  - ASPIRATION [None]
  - BLOOD GLUCOSE INCREASED [None]
  - BLOOD PRESSURE INCREASED [None]
  - BRAIN INJURY [None]
  - CANDIDIASIS [None]
  - CARDIAC DISORDER [None]
  - CARDIAC FAILURE CONGESTIVE [None]
  - CHOKING [None]
  - DEATH [None]
  - DECUBITUS ULCER [None]
  - DRUG DEPENDENCE [None]
  - HYPONATRAEMIA [None]
  - MENTAL STATUS CHANGES [None]
  - PNEUMONIA ASPIRATION [None]
  - POLLAKIURIA [None]
  - REPETITIVE SPEECH [None]
  - SEPSIS [None]
  - URINARY TRACT INFECTION [None]
